FAERS Safety Report 16158040 (Version 1)
Quarter: 2019Q2

REPORT INFORMATION
  Report Type: Spontaneous
  Country: IT (occurrence: IT)
  Receive Date: 20190404
  Receipt Date: 20190404
  Transmission Date: 20190711
  Serious: Yes (Hospitalization)
  Sender: FDA-Public Use
  Company Number: IT-CORDEN PHARMA LATINA S.P.A.-IT-2019COR000066

PATIENT

DRUGS (6)
  1. DOXORUBICIN [Suspect]
     Active Substance: DOXORUBICIN
     Indication: EWING^S SARCOMA
     Dosage: 75 MG/M2, DAY 1 EVERY 21 DAYS, ALTERNATING WITH IE SCHEDULE
     Route: 042
     Dates: start: 201606
  2. IFOSFAMIDE. [Suspect]
     Active Substance: IFOSFAMIDE
     Indication: EWING^S SARCOMA
     Dosage: 1800 MG/M2, DAY1 -5 EVERY 21 DAYS
     Route: 042
     Dates: start: 201606
  3. VINCRISTINE [Suspect]
     Active Substance: VINCRISTINE
     Indication: EWING^S SARCOMA
     Dosage: 2 MG/M2, DAY 1 EVERY 21 DAYS, ALTERNATING WITH IE SCHEDULE
     Route: 042
     Dates: start: 201606
  4. CYCLOPHOSPHAMIDE. [Suspect]
     Active Substance: CYCLOPHOSPHAMIDE
     Indication: EWING^S SARCOMA
     Dosage: 1200 MG/M2 DAY 1 EVERY 21 DAYS, ALTERNATING WITH IE SCHEDULE
     Route: 042
     Dates: start: 201606
  5. MESNA. [Suspect]
     Active Substance: MESNA
     Indication: EWING^S SARCOMA
     Dosage: UNK, DAY 1-5 EVERY 21 DAYS
     Route: 042
     Dates: start: 201606
  6. ETOPOSIDE. [Suspect]
     Active Substance: ETOPOSIDE
     Indication: EWING^S SARCOMA
     Dosage: 100 MG/M2, DAY1 -5 EVERY 21 DAYS
     Dates: start: 201606

REACTIONS (3)
  - Nausea [Unknown]
  - Febrile neutropenia [Recovered/Resolved]
  - Vomiting [Unknown]

NARRATIVE: CASE EVENT DATE: 2016
